FAERS Safety Report 6551998-7 (Version None)
Quarter: 2010Q1

REPORT INFORMATION
  Report Type: 
  Country: None (occurrence: None)
  Receive Date: 20100126
  Receipt Date: 20100120
  Transmission Date: 20100710
  Serious: Yes (Other)
  Sender: FDA-Public Use
  Company Number: DE-ROCHE-675931

PATIENT
  Sex: Female
  Weight: 72 kg

DRUGS (4)
  1. AVASTIN [Suspect]
     Indication: OVARIAN CANCER METASTATIC
     Route: 042
     Dates: start: 20091201, end: 20091210
  2. DOCETAXEL [Suspect]
     Indication: OVARIAN CANCER METASTATIC
     Route: 042
     Dates: start: 20091201, end: 20091210
  3. KEVATRIL [Concomitant]
     Indication: ANTIEMETIC SUPPORTIVE CARE
     Route: 042
     Dates: start: 20091201
  4. FORTECORTIN [Concomitant]
     Dosage: GIVEN ON DAY 1,2 AND 3 OF CYCLE
     Route: 048
     Dates: start: 20091201, end: 20091204

REACTIONS (2)
  - GASTROINTESTINAL HAEMORRHAGE [None]
  - HAEMOGLOBIN DECREASED [None]
